FAERS Safety Report 11957279 (Version 3)
Quarter: 2016Q2

REPORT INFORMATION
  Report Type: Spontaneous
  Country: TW (occurrence: TW)
  Receive Date: 20160126
  Receipt Date: 20160401
  Transmission Date: 20160815
  Serious: Yes (Life-Threatening)
  Sender: FDA-Public Use
  Company Number: TW-PFIZER INC-2016038416

PATIENT
  Age: 62 Year
  Sex: Male

DRUGS (6)
  1. HEPARIN SODIUM. [Suspect]
     Active Substance: HEPARIN SODIUM
     Dosage: 3000 U BOLUS (UNFRACTIONATED HEPARIN)
     Route: 022
  2. HEPARIN SODIUM. [Suspect]
     Active Substance: HEPARIN SODIUM
     Dosage: 3000 U BOLUS (UNFRACTIONATED HEPARIN)
     Route: 022
  3. CLOPIDOGREL [Concomitant]
     Active Substance: CLOPIDOGREL BISULFATE
     Dosage: 300 MG, UNK
  4. HEPARIN SODIUM. [Suspect]
     Active Substance: HEPARIN SODIUM
     Dosage: 8000 U BOLUS (UNFRACTIONATED HEPARIN)
     Route: 040
  5. HEPARIN SODIUM. [Suspect]
     Active Substance: HEPARIN SODIUM
     Dosage: 3000 U BOLUS (UNFRACTIONATED HEPARIN)
     Route: 040
  6. HEPARIN SODIUM. [Suspect]
     Active Substance: HEPARIN SODIUM
     Dosage: 3000 U BOLUS (UNFRACTIONATED HEPARIN)
     Route: 040

REACTIONS (3)
  - Cardiac arrest [Recovered/Resolved]
  - Heparin resistance [Recovered/Resolved]
  - Vascular stent thrombosis [Recovered/Resolved]
